FAERS Safety Report 18392943 (Version 2)
Quarter: 2021Q2

REPORT INFORMATION
  Report Type: Spontaneous
  Country: JP (occurrence: JP)
  Receive Date: 20201016
  Receipt Date: 20210423
  Transmission Date: 20210717
  Serious: Yes (Other)
  Sender: FDA-Public Use
  Company Number: JP-SHIRE-JP202033197

PATIENT
  Age: 17 Year
  Sex: Male
  Weight: 39.91 kg

DRUGS (1)
  1. 476 (MESALAZINE/MESALAMINE) [Suspect]
     Active Substance: MESALAMINE
     Indication: COLITIS ULCERATIVE
     Dosage: UNK, UNKNOWN
     Route: 065

REACTIONS (2)
  - Pneumomediastinum [Recovering/Resolving]
  - Subcutaneous emphysema [Recovering/Resolving]
